FAERS Safety Report 21576412 (Version 2)
Quarter: 2024Q1

REPORT INFORMATION
  Report Type: Other
  Country: CA (occurrence: CA)
  Receive Date: 20221110
  Receipt Date: 20240228
  Transmission Date: 20240410
  Serious: Yes (Hospitalization, Other)
  Sender: FDA-Public Use
  Company Number: CA-APOTEX-2022AP014996

PATIENT
  Age: 63 Year
  Sex: Female

DRUGS (7)
  1. ALBUTEROL\IPRATROPIUM [Suspect]
     Active Substance: ALBUTEROL\IPRATROPIUM
     Indication: Seasonal allergy
     Dosage: 2 DOSAGE FORM, QD
     Route: 065
  2. ALBUTEROL\IPRATROPIUM [Suspect]
     Active Substance: ALBUTEROL\IPRATROPIUM
     Dosage: 2 DOSAGE FORM
     Route: 065
  3. OMALIZUMAB [Suspect]
     Active Substance: OMALIZUMAB
     Indication: Asthma
     Dosage: 225 MILLIGRAM, Q.O.WK.
     Route: 058
  4. OMALIZUMAB [Suspect]
     Active Substance: OMALIZUMAB
     Dosage: 300 MILLIGRAM, Q.O.WK.
     Route: 058
  5. OMALIZUMAB [Suspect]
     Active Substance: OMALIZUMAB
     Dosage: UNK
     Route: 058
  6. OMALIZUMAB [Suspect]
     Active Substance: OMALIZUMAB
     Dosage: 225 MILLIGRAM
     Route: 058
  7. AMIODARONE [Concomitant]
     Active Substance: AMIODARONE
     Indication: Product used for unknown indication
     Dosage: UNK
     Route: 048

REACTIONS (38)
  - Asthma [Recovered/Resolved]
  - Body temperature decreased [Recovered/Resolved]
  - Bone density decreased [Recovered/Resolved]
  - Cataract [Recovered/Resolved]
  - Cardiomegaly [Recovered/Resolved]
  - Chest pain [Recovered/Resolved]
  - Chills [Recovered/Resolved]
  - Decreased appetite [Recovered/Resolved]
  - Depressed mood [Recovered/Resolved]
  - Dyspnoea [Recovered/Resolved]
  - Dyspnoea exertional [Recovered/Resolved]
  - Incorrect dose administered [Recovered/Resolved]
  - Eye pruritus [Recovered/Resolved]
  - Forced expiratory volume decreased [Recovered/Resolved]
  - Infection [Recovered/Resolved]
  - Influenza [Recovered/Resolved]
  - Sensitivity to weather change [Recovered/Resolved]
  - Seasonal allergy [Recovered/Resolved]
  - Malaise [Recovered/Resolved]
  - Middle insomnia [Recovered/Resolved]
  - Pneumonia [Recovered/Resolved]
  - Secretion discharge [Recovered/Resolved]
  - Productive cough [Recovered/Resolved]
  - Pulmonary pain [Recovered/Resolved]
  - Pyrexia [Recovered/Resolved]
  - Rhinorrhoea [Recovered/Resolved]
  - Back pain [Recovered/Resolved]
  - Lung disorder [Recovered/Resolved]
  - Headache [Recovered/Resolved]
  - Alopecia [Recovered/Resolved]
  - Dizziness [Recovered/Resolved]
  - Insomnia [Recovered/Resolved]
  - Cough [Recovered/Resolved]
  - Nausea [Recovered/Resolved]
  - Tremor [Recovered/Resolved]
  - Blood pressure systolic increased [Recovered/Resolved]
  - Muscle spasms [Recovered/Resolved]
  - Hypersensitivity [Recovered/Resolved]
